FAERS Safety Report 4335880-1 (Version None)
Quarter: 2004Q2

REPORT INFORMATION
  Report Type: 
  Country: None (occurrence: None)
  Receive Date: 20040406
  Receipt Date: 20040406
  Transmission Date: 20050107
  Serious: Yes (Life-Threatening, Hospitalization, Disabling)
  Sender: FDA-Public Use
  Company Number: 30019062-NA01-1

PATIENT
  Age: 76 Year
  Sex: Female

DRUGS (1)
  1. EXTRANEAL [Suspect]
     Indication: PERITONEAL DIALYSIS
     Dosage: 7.5% ICODEXTRIN QD IP
     Route: 033
     Dates: start: 20030315, end: 20040307

REACTIONS (8)
  - BLOOD GLUCOSE FALSE POSITIVE [None]
  - COMA [None]
  - HYPOGLYCAEMIC COMA [None]
  - LABORATORY TEST INTERFERENCE [None]
  - LUNG DISORDER [None]
  - PERITONITIS BACTERIAL [None]
  - QUADRIPARESIS [None]
  - STAPHYLOCOCCAL INFECTION [None]
